FAERS Safety Report 17246586 (Version 1)
Quarter: 2020Q1

REPORT INFORMATION
  Report Type: Spontaneous
  Country: US (occurrence: US)
  Receive Date: 20200107
  Receipt Date: 20200107
  Transmission Date: 20200409
  Serious: Yes (Hospitalization)
  Sender: FDA-Public Use
  Company Number: None

PATIENT
  Age: 49 Year
  Sex: Female

DRUGS (17)
  1. ALPRAZOLAM. [Concomitant]
     Active Substance: ALPRAZOLAM
  2. CELECOXIB. [Concomitant]
     Active Substance: CELECOXIB
  3. METFORMIN [Concomitant]
     Active Substance: METFORMIN HYDROCHLORIDE
  4. PROPRANOLOL [Concomitant]
     Active Substance: PROPRANOLOL HYDROCHLORIDE
  5. NIALTREXONE [Concomitant]
  6. OLMESA MEDOX [Concomitant]
  7. DEXTROAMPHET SACCHARAT, AMPHET ASPARTATE, DEXTROAMPHET SULFATE AND AMPHET SULFAT [Concomitant]
     Active Substance: AMPHETAMINE ASPARTATE\AMPHETAMINE SULFATE\DEXTROAMPHETAMINE SACCHARATE\DEXTROAMPHETAMINE SULFATE
  8. POT CITRATE [Concomitant]
     Active Substance: POTASSIUM CITRATE
  9. RIZATRIPTAN. [Concomitant]
     Active Substance: RIZATRIPTAN
  10. CYANOCOBALAM [Concomitant]
     Active Substance: CYANOCOBALAMIN
  11. KETOROLAC [Concomitant]
     Active Substance: KETOROLAC TROMETHAMINE
  12. AIMOVIG [Suspect]
     Active Substance: ERENUMAB-AOOE
     Indication: MIGRAINE
     Dosage: ?          OTHER FREQUENCY:MONTHLY;?
     Route: 058
     Dates: start: 20190413
  13. TAMSULOSIN [Concomitant]
     Active Substance: TAMSULOSIN
  14. BUPROPION. [Concomitant]
     Active Substance: BUPROPION
  15. OXYBUTIN [Concomitant]
     Active Substance: OXYBUTYNIN
  16. TRINTELLIX [Concomitant]
     Active Substance: VORTIOXETINE HYDROBROMIDE
  17. VALSARTAN. [Concomitant]
     Active Substance: VALSARTAN

REACTIONS (1)
  - Renal stone removal [None]

NARRATIVE: CASE EVENT DATE: 20200101
